FAERS Safety Report 7129094-X (Version None)
Quarter: 2010Q4

REPORT INFORMATION
  Report Type: 
  Country: None (occurrence: None)
  Receive Date: 20101130
  Receipt Date: 20101126
  Transmission Date: 20110411
  Serious: Yes (Other)
  Sender: FDA-Public Use
  Company Number: BE-ROCHE-744729

PATIENT
  Sex: Male
  Weight: 72 kg

DRUGS (11)
  1. ROACTEMRA [Suspect]
     Indication: RHEUMATOID ARTHRITIS
     Route: 042
     Dates: start: 20091223, end: 20100414
  2. HUMIRA [Suspect]
     Indication: RHEUMATOID ARTHRITIS
     Route: 058
     Dates: start: 20060523, end: 20070724
  3. LEDERTREXATE [Concomitant]
     Indication: RHEUMATOID ARTHRITIS
     Route: 048
     Dates: start: 20000101
  4. ARAVA [Concomitant]
     Indication: RHEUMATOID ARTHRITIS
     Route: 048
     Dates: start: 20040101, end: 20100701
  5. MEDROL [Concomitant]
     Indication: RHEUMATOID ARTHRITIS
     Route: 048
     Dates: start: 20000101
  6. PERINDOPRIL ERBUMINE [Concomitant]
     Route: 048
     Dates: start: 20070701
  7. KREDEX [Concomitant]
     Route: 048
     Dates: start: 20070701
  8. APROVEL [Concomitant]
     Route: 048
     Dates: start: 20070701
  9. CELEBREX [Concomitant]
     Indication: RHEUMATOID ARTHRITIS
     Route: 048
     Dates: start: 20041212
  10. ZOCOR [Concomitant]
     Route: 048
     Dates: start: 20070701
  11. METFORMAX [Concomitant]
     Route: 048
     Dates: start: 20010401

REACTIONS (1)
  - CARDIAC FAILURE [None]
